FAERS Safety Report 22181879 (Version 3)
Quarter: 2023Q2

REPORT INFORMATION
  Report Type: Report from Study
  Country: PL (occurrence: PL)
  Receive Date: 20230406
  Receipt Date: 20230621
  Transmission Date: 20230721
  Serious: Yes (Death, Hospitalization)
  Sender: FDA-Public Use
  Company Number: PL-ROCHE-3317560

PATIENT
  Age: 66 Year
  Sex: Male

DRUGS (14)
  1. DOXORUBICIN HYDROCHLORIDE [Suspect]
     Active Substance: DOXORUBICIN HYDROCHLORIDE
     Indication: Diffuse large B-cell lymphoma
     Dosage: THE MOST RECENT CYCLE WAS STARTED ON 09JUN2016
     Route: 042
     Dates: start: 20160428, end: 20160716
  2. RITUXIMAB [Suspect]
     Active Substance: RITUXIMAB
     Indication: Diffuse large B-cell lymphoma
     Dosage: FREQ:21 D; THE MOST RECENT CYCLE WAS STARTED ON 09JUN2016
     Route: 042
     Dates: start: 20160428, end: 20160716
  3. CYCLOPHOSPHAMIDE [Suspect]
     Active Substance: CYCLOPHOSPHAMIDE
     Indication: Diffuse large B-cell lymphoma
     Dosage: FREQ:21 D; THE MOST RECENT CYCLE WAS STARTED ON 09JUN2016
     Route: 042
     Dates: start: 20160428, end: 20160716
  4. VINCRISTINE [Suspect]
     Active Substance: VINCRISTINE
     Indication: Diffuse large B-cell lymphoma
     Dosage: FREQ:21 D;THE MOST RECENT CYCLE WAS STARTED ON 09JUN2016
     Route: 042
     Dates: start: 20160428, end: 20160716
  5. PREDNISONE [Suspect]
     Active Substance: PREDNISONE
     Indication: Diffuse large B-cell lymphoma
     Dosage: FREQ:21 D;THE MOST RECENT CYCLE WAS STARTED ON 09JUN2016
     Route: 048
     Dates: start: 20160428, end: 20160716
  6. PLACEBO [Suspect]
     Active Substance: UNSPECIFIED INGREDIENT
     Dosage: ONCE DAILY, 1-14 DAYS AND 21-DAY CYCLE
     Route: 048
     Dates: start: 20160428, end: 20160716
  7. HYDROCORTISONE [Concomitant]
     Active Substance: HYDROCORTISONE
  8. ONDANSETRON [Concomitant]
     Active Substance: ONDANSETRON
  9. ASPIRIN [Concomitant]
     Active Substance: ASPIRIN
  10. GRANULOCYTE COLONY-STIMULATING FACTOR NOS [Concomitant]
     Active Substance: GRANULOCYTE COLONY-STIMULATING FACTOR NOS
  11. DOXAZOSIN MESYLATE [Concomitant]
     Active Substance: DOXAZOSIN MESYLATE
  12. TAMSULOSIN HYDROCHLORIDE [Concomitant]
     Active Substance: TAMSULOSIN HYDROCHLORIDE
  13. FINASTERIDE [Concomitant]
     Active Substance: FINASTERIDE
  14. ACETAMINOPHEN [Concomitant]
     Active Substance: ACETAMINOPHEN

REACTIONS (4)
  - Dyspnoea [Fatal]
  - Pneumonia [Recovered/Resolved]
  - Anaemia [Recovered/Resolved]
  - Dehydration [Recovered/Resolved]

NARRATIVE: CASE EVENT DATE: 20160623
